FAERS Safety Report 6120860-6 (Version None)
Quarter: 2009Q1

REPORT INFORMATION
  Report Type: 
  Country: None (occurrence: None)
  Receive Date: 20090312
  Receipt Date: 20090305
  Transmission Date: 20090719
  Serious: Yes (Hospitalization)
  Sender: FDA-Public Use
  Company Number: VISP-NO-0903S-0093

PATIENT
  Age: 75 Year
  Sex: Female

DRUGS (2)
  1. VISIPAQUE [Suspect]
     Indication: DRUG USE FOR UNKNOWN INDICATION
     Dosage: SINGLE DOSE
     Dates: start: 20080630, end: 20080630
  2. AUGMENTIN [Concomitant]

REACTIONS (4)
  - ALTERED STATE OF CONSCIOUSNESS [None]
  - CHOLESTASIS [None]
  - EPIDERMAL NECROSIS [None]
  - TOXIC SKIN ERUPTION [None]
